FAERS Safety Report 4652871-1 (Version None)
Quarter: 2005Q2

REPORT INFORMATION
  Report Type: 
  Country: None (occurrence: None)
  Receive Date: 20050502
  Receipt Date: 20050420
  Transmission Date: 20051028
  Serious: Yes (Hospitalization)
  Sender: FDA-Public Use
  Company Number: B0378863A

PATIENT
  Age: 43 Year
  Sex: Female

DRUGS (4)
  1. ZANTAC [Suspect]
     Indication: ABDOMINAL PAIN
     Dosage: ORAL
     Route: 048
     Dates: start: 20020101, end: 20020101
  2. TROXIPIDE (TROXIPIDE) [Suspect]
     Indication: ABDOMINAL PAIN
     Dosage: ORAL
     Route: 048
     Dates: start: 20020101, end: 20020101
  3. TIMEPIDIUM BROMIDE (TIMEPIDIUM BROMIDE) [Suspect]
     Indication: ABDOMINAL PAIN
     Dosage: ORAL
     Route: 048
     Dates: start: 20020101, end: 20020101
  4. DIGESTIVE ENZYME (DIGESTIVE ENZYME) [Suspect]
     Indication: ABDOMINAL PAIN
     Dosage: ORAL
     Route: 048
     Dates: start: 20020101, end: 20020101

REACTIONS (11)
  - ALANINE AMINOTRANSFERASE INCREASED [None]
  - BLOOD ALBUMIN DECREASED [None]
  - BLOOD ALKALINE PHOSPHATASE INCREASED [None]
  - BLOOD BILIRUBIN DECREASED [None]
  - GAMMA-GLUTAMYLTRANSFERASE INCREASED [None]
  - GRANULOMA [None]
  - LEUCINE AMINOPEPTIDASE INCREASED [None]
  - LIVER DISORDER [None]
  - SALIVARY GLAND MASS [None]
  - SIALOADENITIS [None]
  - WHITE BLOOD CELL COUNT INCREASED [None]
